FAERS Safety Report 8156664-2 (Version None)
Quarter: 2012Q1

REPORT INFORMATION
  Report Type: 
  Country: None (occurrence: None)
  Receive Date: 20120222
  Receipt Date: 20120213
  Transmission Date: 20120608
  Serious: Yes (Hospitalization, Other)
  Sender: FDA-Public Use
  Company Number: US-BAYER-201041817NA

PATIENT
  Age: 29 Year
  Sex: Female

DRUGS (6)
  1. MULTI-VITAMINS [Concomitant]
  2. VITAMIN D [Concomitant]
  3. DROSPIRENONE AND ETHINYL ESTRADIOL [Suspect]
     Indication: CONTRACEPTION
     Dosage: UNK
     Dates: start: 20081201, end: 20100120
  4. ORTHO TRI-CYCLEN [Concomitant]
  5. DROSPIRENONE AND ETHINYL ESTRADIOL [Suspect]
     Indication: ACNE
  6. ASCORBIC ACID [Concomitant]

REACTIONS (4)
  - GALLBLADDER DISORDER [None]
  - PULMONARY EMBOLISM [None]
  - PULMONARY INFARCTION [None]
  - CHOLECYSTITIS CHRONIC [None]
